FAERS Safety Report 8974773 (Version 2)
Quarter: 2013Q1

REPORT INFORMATION
  Report Type: Spontaneous
  Country: NL (occurrence: NL)
  Receive Date: 20121219
  Receipt Date: 20130114
  Transmission Date: 20140127
  Serious: Yes (Other)
  Sender: FDA-Public Use
  Company Number: NL-ROCHE-1171856

PATIENT
  Sex: Male
  Weight: 80 kg

DRUGS (2)
  1. ZELBORAF [Suspect]
     Indication: METASTATIC MALIGNANT MELANOMA
     Route: 048
  2. DEPAKINE CHRONO [Concomitant]
     Route: 065

REACTIONS (1)
  - Malignant melanoma [Recovering/Resolving]
